FAERS Safety Report 5673301-7 (Version None)
Quarter: 2008Q1

REPORT INFORMATION
  Report Type: 
  Country: None (occurrence: None)
  Receive Date: 20080319
  Receipt Date: 20080312
  Transmission Date: 20080703
  Serious: Yes (Life-Threatening)
  Sender: FDA-Public Use
  Company Number: NL-ELI_LILLY_AND_COMPANY-NL200803002931

PATIENT
  Age: 63 Year
  Sex: Male
  Weight: 79 kg

DRUGS (4)
  1. CIALIS [Suspect]
     Indication: ERECTILE DYSFUNCTION
     Dosage: 20 MG, ONCE EVERY TWO WEEKS
     Route: 048
     Dates: start: 20050701
  2. ATORVASTATIN CALCIUM [Concomitant]
     Dosage: 10 MG, UNK
  3. CARBASALATE CALCIUM [Concomitant]
     Dosage: 100 MG, UNK
  4. AMLODIPINE [Concomitant]
     Dosage: 5 MG, UNK

REACTIONS (1)
  - AMAUROSIS FUGAX [None]
